FAERS Safety Report 8775280 (Version 2)
Quarter: 2012Q4

REPORT INFORMATION
  Report Type: 
  Country: JP (occurrence: JP)
  Receive Date: 20120910
  Receipt Date: 20120926
  Transmission Date: 20130627
  Serious: Yes (Life-Threatening, Hospitalization)
  Sender: FDA-Public Use
  Company Number: JP-ROCHE-1117045

PATIENT
  Age: 79 Year
  Sex: Female
  Weight: 39 kg

DRUGS (12)
  1. AVASTIN [Suspect]
     Indication: COLON CANCER RECURRENT
     Route: 041
     Dates: start: 20110614, end: 20120717
  2. LEVOFOLINATE [Concomitant]
     Indication: COLON CANCER RECURRENT
     Route: 041
     Dates: start: 20110614, end: 20120717
  3. ELPLAT [Concomitant]
     Indication: COLON CANCER RECURRENT
     Route: 041
     Dates: start: 20110614, end: 20120717
  4. 5-FLUOROURACIL [Concomitant]
     Indication: COLON CANCER RECURRENT
     Route: 040
     Dates: start: 20110614, end: 20120717
  5. 5-FLUOROURACIL [Concomitant]
     Indication: COLON CANCER RECURRENT
     Route: 041
     Dates: start: 20110614, end: 20120717
  6. GRANISETRON [Concomitant]
     Indication: PROPHYLAXIS
     Route: 042
     Dates: start: 20110614, end: 20120717
  7. DECADRON [Concomitant]
     Indication: PROPHYLAXIS
     Route: 042
     Dates: start: 20110614, end: 20120717
  8. ADALAT CR [Concomitant]
     Indication: HYPERTENSION
     Route: 048
  9. CONIEL [Concomitant]
     Indication: HYPERTENSION
     Route: 048
  10. GASTER [Concomitant]
     Indication: GASTRITIS
     Route: 048
  11. BAYASPIRIN [Concomitant]
     Indication: CEREBRAL INFARCTION
     Route: 048
     Dates: end: 20110601
  12. FUROSEMIDE [Concomitant]
     Indication: OEDEMA
     Route: 048
     Dates: start: 20120327

REACTIONS (2)
  - Gastrointestinal perforation [Recovering/Resolving]
  - Peritonitis [Unknown]
